FAERS Safety Report 25417388 (Version 1)
Quarter: 2025Q2

REPORT INFORMATION
  Report Type: Spontaneous
  Country: RU (occurrence: RU)
  Receive Date: 20250610
  Receipt Date: 20250610
  Transmission Date: 20250717
  Serious: Yes (Life-Threatening)
  Sender: ABBVIE
  Company Number: RU-ABBVIE-6320212

PATIENT
  Age: 6 Year
  Sex: Male
  Weight: 41 kg

DRUGS (3)
  1. SEVOFLURANE [Suspect]
     Active Substance: SEVOFLURANE
     Indication: General anaesthesia
     Route: 055
     Dates: start: 20250530, end: 20250530
  2. SEVOFLURANE [Suspect]
     Active Substance: SEVOFLURANE
     Indication: General anaesthesia
     Route: 055
     Dates: start: 20250530, end: 20250530
  3. TRAMADOL [Concomitant]
     Active Substance: TRAMADOL
     Indication: Anaesthetic premedication
     Route: 030
     Dates: start: 20250530, end: 20250530

REACTIONS (3)
  - Pulmonary oedema [Recovering/Resolving]
  - Haemoptysis [Recovering/Resolving]
  - Oxygen saturation decreased [Recovering/Resolving]

NARRATIVE: CASE EVENT DATE: 20250530
